FAERS Safety Report 26061859 (Version 1)
Quarter: 2025Q4

REPORT INFORMATION
  Report Type: Spontaneous
  Country: US (occurrence: US)
  Receive Date: 20251119
  Receipt Date: 20251119
  Transmission Date: 20260117
  Serious: No
  Sender: APELLIS PHARMACEUTICALS
  Company Number: US-APELLIS-2025-APL-0002197

PATIENT

DRUGS (1)
  1. EMPAVELI [Suspect]
     Active Substance: PEGCETACOPLAN
     Indication: C3 glomerulopathy
     Dosage: 648 MG./12 ML, TWICE WEEKLY
     Route: 058
     Dates: start: 20251104

REACTIONS (2)
  - Injection site pain [Recovered/Resolved]
  - Anxiety [Unknown]
